FAERS Safety Report 13291667 (Version 1)
Quarter: 2017Q1

REPORT INFORMATION
  Report Type: Spontaneous
  Country: US (occurrence: US)
  Receive Date: 20170302
  Receipt Date: 20170302
  Transmission Date: 20170428
  Serious: No
  Sender: FDA-Public Use
  Company Number: US-PERRIGO-16US022054

PATIENT
  Sex: Female

DRUGS (1)
  1. LOPERAMIDE HYDROCHLORIDE. [Suspect]
     Active Substance: LOPERAMIDE HYDROCHLORIDE
     Indication: ANAL INCONTINENCE
     Dosage: TOTAL OF 16 MG, QD
     Route: 048
     Dates: start: 20161113

REACTIONS (5)
  - Pain in extremity [Unknown]
  - Incorrect drug administration duration [Unknown]
  - Off label use [Unknown]
  - Back pain [Unknown]
  - Overdose [Unknown]

NARRATIVE: CASE EVENT DATE: 201611
